FAERS Safety Report 5589319-9 (Version None)
Quarter: 2008Q1

REPORT INFORMATION
  Report Type: 
  Country: None (occurrence: None)
  Receive Date: 20080114
  Receipt Date: 20080108
  Transmission Date: 20080703
  Serious: Yes (Hospitalization, Other)
  Sender: FDA-Public Use
  Company Number: GB-JNJFOC-20080102189

PATIENT
  Sex: Male
  Weight: 77 kg

DRUGS (8)
  1. REMICADE [Suspect]
     Indication: RHEUMATOID ARTHRITIS
     Route: 042
  2. GOLD [Concomitant]
  3. AZATHIOPRINE [Concomitant]
  4. PREDNISOLONE [Concomitant]
  5. BENDROFLUAZIDE [Concomitant]
  6. SEVREDOL [Concomitant]
  7. TRAMADOL HCL [Concomitant]
  8. WARFARIN [Concomitant]

REACTIONS (2)
  - VIRAL INFECTION [None]
  - VOMITING [None]
